FAERS Safety Report 22282206 (Version 1)
Quarter: 2023Q2

REPORT INFORMATION
  Report Type: Spontaneous
  Country: CA (occurrence: CA)
  Receive Date: 20230504
  Receipt Date: 20230504
  Transmission Date: 20230722
  Serious: Yes (Other)
  Sender: FDA-Public Use
  Company Number: CA-ORGANON-O2305CAN000173

PATIENT
  Age: 60 Year
  Sex: Male

DRUGS (20)
  1. REMERON [Suspect]
     Active Substance: MIRTAZAPINE
     Indication: Neuropathic pruritus
     Dosage: 15 MILLIGRAM
     Route: 065
  2. REMERON [Suspect]
     Active Substance: MIRTAZAPINE
     Dosage: UNK
     Route: 065
  3. CAMPHOR [Suspect]
     Active Substance: CAMPHOR
     Indication: Neuropathic pruritus
     Dosage: (DOSAGE FORM NOT SPECIFIED)
     Route: 061
  4. .DELTA.9-TETRAHYDROCANNABINOL\CANNABIDIOL\HERBALS [Suspect]
     Active Substance: .DELTA.9-TETRAHYDROCANNABINOL\CANNABIDIOL\HERBALS
     Indication: Neuropathic pruritus
     Dosage: 1 DOSAGE FORM, 2 EVERY 1 DAYS
     Route: 048
  5. .DELTA.9-TETRAHYDROCANNABINOL\CANNABIDIOL\HERBALS [Suspect]
     Active Substance: .DELTA.9-TETRAHYDROCANNABINOL\CANNABIDIOL\HERBALS
     Indication: Pruritus
     Dosage: UNK
     Route: 048
  6. .DELTA.9-TETRAHYDROCANNABINOL\CANNABIDIOL\HERBALS [Suspect]
     Active Substance: .DELTA.9-TETRAHYDROCANNABINOL\CANNABIDIOL\HERBALS
     Dosage: 1 DOSAGE FORM, 1 EVERY 5 DAYS
     Route: 048
  7. .DELTA.9-TETRAHYDROCANNABINOL\CANNABIDIOL\HERBALS [Suspect]
     Active Substance: .DELTA.9-TETRAHYDROCANNABINOL\CANNABIDIOL\HERBALS
     Dosage: 2.43 MILLIGRAM
     Route: 048
  8. .DELTA.9-TETRAHYDROCANNABINOL\CANNABIDIOL\HERBALS [Suspect]
     Active Substance: .DELTA.9-TETRAHYDROCANNABINOL\CANNABIDIOL\HERBALS
     Dosage: 2.75 MILLIGRAM
     Route: 048
  9. CAPSAICIN [Suspect]
     Active Substance: CAPSAICIN
     Indication: Neuropathic pruritus
     Dosage: UNK
     Route: 061
  10. HYDROXYZINE [Suspect]
     Active Substance: HYDROXYZINE HYDROCHLORIDE
     Indication: Neuropathic pruritus
     Dosage: 25 MILLIGRAM, 3 EVERY 1 DAYS
     Route: 065
  11. HYDROXYZINE [Suspect]
     Active Substance: HYDROXYZINE HYDROCHLORIDE
     Dosage: 25 MILLIGRAM
     Route: 065
  12. MENTHOL [Suspect]
     Active Substance: MENTHOL
     Indication: Neuropathic pruritus
     Dosage: (DOSAGE FORM NOT SPECIFIED)
     Route: 061
  13. NORTRIPTYLINE [Suspect]
     Active Substance: NORTRIPTYLINE
     Indication: Neuropathic pruritus
     Dosage: 10 MILLIGRAM
     Route: 065
  14. NORTRIPTYLINE [Suspect]
     Active Substance: NORTRIPTYLINE
     Dosage: UNK
     Route: 065
  15. PREGABALIN [Suspect]
     Active Substance: PREGABALIN
     Indication: Neuropathic pruritus
     Dosage: 50 MILLIGRAM, 2 EVERY 1 DAYS
     Route: 065
  16. PREGABALIN [Suspect]
     Active Substance: PREGABALIN
     Dosage: 50 MILLIGRAM, 1 EVERY 5 DAYS
     Route: 065
  17. VENLAFAXINE [Suspect]
     Active Substance: VENLAFAXINE HYDROCHLORIDE
     Indication: Neuropathic pruritus
     Dosage: 150 MILLIGRAM, 1 EVERY 1 DAYS
     Route: 065
  18. CAMPHOR [Concomitant]
     Active Substance: CAMPHOR
     Indication: Pruritus
     Dosage: UNK,(DOSAGE FORM NOT SPECIFIED)
     Route: 065
  19. CAPSAICIN [Concomitant]
     Active Substance: CAPSAICIN
     Indication: Pruritus
     Dosage: UNK
     Route: 065
  20. MENTHOL [Concomitant]
     Active Substance: MENTHOL
     Indication: Pruritus
     Dosage: (DOSAGE FORM NOT SPECIFIED)
     Route: 065

REACTIONS (4)
  - Anticholinergic syndrome [Unknown]
  - Drug ineffective [Unknown]
  - Off label use [Unknown]
  - Sedation [Unknown]
